FAERS Safety Report 7525730-4 (Version None)
Quarter: 2011Q2

REPORT INFORMATION
  Report Type: 
  Country: None (occurrence: None)
  Receive Date: 20110606
  Receipt Date: 20110520
  Transmission Date: 20111010
  Serious: No
  Sender: FDA-Public Use
  Company Number: US-B.I. PHARMACEUTICALS,INC./RIDGEFIELD-2011-BP-13622BP

PATIENT
  Sex: Male

DRUGS (8)
  1. MESYLATE [Concomitant]
  2. ZOCOR [Concomitant]
  3. LEXAPRO [Concomitant]
  4. OMEPRAZOLE [Concomitant]
     Dates: end: 20110401
  5. METOPROLOL TARTRATE [Concomitant]
  6. ZANTAC 75 [Suspect]
     Dosage: 75 MG
     Route: 048
     Dates: start: 20110401
  7. PLAVIX [Suspect]
     Dates: start: 20110401
  8. DOXAZOSIN MESYLATE [Concomitant]

REACTIONS (1)
  - GASTROOESOPHAGEAL REFLUX DISEASE [None]
